FAERS Safety Report 10362995 (Version 1)
Quarter: 2014Q3

REPORT INFORMATION
  Report Type: Spontaneous
  Country: FR (occurrence: FR)
  Receive Date: 20140805
  Receipt Date: 20140805
  Transmission Date: 20150326
  Serious: Yes (Hospitalization, Other)
  Sender: FDA-Public Use
  Company Number: FR-TEVA-498012ISR

PATIENT
  Age: 79 Year
  Sex: Male

DRUGS (12)
  1. DOXAZOSINE 4MG [Concomitant]
     Dosage: 1 DOSAGE FORMS DAILY;
  2. AMOXICILLINE / ACIDE CLAVULANIQUE 1G/125MG [Suspect]
     Active Substance: AMOXICILLIN\CLAVULANIC ACID
     Indication: BRONCHITIS
     Dosage: 3 DOSAGE FORMS DAILY;
     Route: 048
     Dates: start: 20140425, end: 20140430
  3. HELICIDINE [Suspect]
     Active Substance: ESCARGOT
     Indication: BRONCHITIS
     Dosage: 30 ML DAILY;
     Route: 048
     Dates: start: 20140425
  4. PLAVIX [Concomitant]
     Active Substance: CLOPIDOGREL BISULFATE
     Dosage: 1 DOSAGE FORMS DAILY;
  5. AIROMIR AUTOHALER 100 MICROGRAMS/DOSE [Suspect]
     Active Substance: ALBUTEROL SULFATE
     Indication: BRONCHITIS
     Dosage: 6 DOSAGE FORMS DAILY;
     Route: 055
     Dates: start: 20140425, end: 20140504
  6. CARVEDILOL 12.5MG [Concomitant]
     Dosage: 1 DOSAGE FORMS DAILY;
  7. PREDNISOLONE. [Suspect]
     Active Substance: PREDNISOLONE
     Dosage: 80 MILLIGRAM DAILY;
     Route: 048
     Dates: start: 20140425, end: 20140428
  8. LOSARTAN/HYDROCHLOROTHIAZIDE 100MG/12.5MG [Concomitant]
     Dosage: 1 DOSAGE FORMS DAILY;
  9. DIFFU K [Concomitant]
     Active Substance: POTASSIUM CHLORIDE
     Dosage: 3 DOSAGE FORMS DAILY;
  10. KARDEGIC 75MG [Concomitant]
     Dosage: 1 DOSAGE FORMS DAILY;
  11. ATORVASTATINE 10MG [Concomitant]
     Dosage: 1 DOSAGE FORMS DAILY;
  12. NATISPRAY [Concomitant]
     Active Substance: NITROGLYCERIN

REACTIONS (5)
  - Hepatic cirrhosis [Unknown]
  - Portal hypertension [Unknown]
  - Purpura [Recovered/Resolved]
  - Splenomegaly [Unknown]
  - Thrombocytopenia [Recovered/Resolved]

NARRATIVE: CASE EVENT DATE: 20140503
